FAERS Safety Report 26208899 (Version 1)
Quarter: 2025Q4

REPORT INFORMATION
  Report Type: Spontaneous
  Country: US (occurrence: None)
  Receive Date: 20251226
  Receipt Date: 20251226
  Transmission Date: 20260117
  Serious: Yes (Other)
  Sender: FDA-CTU
  Company Number: None

PATIENT
  Sex: Female

DRUGS (11)
  1. CAPECITABINE [Suspect]
     Active Substance: CAPECITABINE
     Indication: Breast cancer female
     Dosage: TAKE 3 TABLETS BY MOUTH EVERY MORNING AND 2 TABLETS EVERY EVENING FOR 14 DAYS ON AND THEN 7  DAYS OFF
     Route: 048
     Dates: start: 20210113
  2. AMMONIUM LAC CRE 12% [Concomitant]
  3. CAPECITABINE [Concomitant]
     Active Substance: CAPECITABINE
  4. CITALOPRAM TAB 10MG [Concomitant]
  5. FAMOTIDINE [Concomitant]
     Active Substance: FAMOTIDINE
  6. LEVOTHYROXIN TAB 150MCG [Concomitant]
  7. LEVOTHYROXIN TAB 50MCG [Concomitant]
  8. ONDANSETRON TAB 4MG ODT [Concomitant]
  9. PAXLOVID TAB 300-100 [Concomitant]
  10. TRETINOIN CRE 0.025% [Concomitant]
  11. TRETINOIN CRE 0.05% [Concomitant]

REACTIONS (1)
  - Malignant neoplasm progression [None]
